FAERS Safety Report 22335648 (Version 1)
Quarter: 2023Q2

REPORT INFORMATION
  Report Type: Report from Study
  Country: BR (occurrence: BR)
  Receive Date: 20230518
  Receipt Date: 20230518
  Transmission Date: 20230721
  Serious: Yes (Other)
  Sender: FDA-Public Use
  Company Number: BR-ABBVIE-4766339

PATIENT
  Age: 52 Year
  Sex: Female
  Weight: 70 kg

DRUGS (9)
  1. RINVOQ [Suspect]
     Active Substance: UPADACITINIB
     Indication: Arthritis reactive
     Dosage: 15 MILLIGRAM
     Route: 048
  2. FLUOXETINE [Concomitant]
     Active Substance: FLUOXETINE HYDROCHLORIDE
     Indication: Depression
     Dosage: FORM STRENGTH 20 MILLIGRAM
     Route: 048
     Dates: start: 2015
  3. OMEPRAZOLE [Concomitant]
     Active Substance: OMEPRAZOLE
     Indication: Dyspepsia
     Dosage: FORM STRENGTH: 20 MILLIGRAM
     Route: 048
     Dates: start: 202304
  4. AMITRIPTYLINE [Concomitant]
     Active Substance: AMITRIPTYLINE
     Indication: Pain
     Dosage: FORM STRENGTH: 25 MILLIGRAM
     Route: 048
     Dates: start: 201610
  5. AMITRIPTYLINE [Concomitant]
     Active Substance: AMITRIPTYLINE
     Indication: Pain
     Dosage: 50 MILLIGRAM
     Route: 048
  6. ROSUVASTATIN CALCIUM [Concomitant]
     Active Substance: ROSUVASTATIN CALCIUM
     Indication: Blood cholesterol
     Dosage: 10 MILLIGRAM
     Route: 048
     Dates: start: 2022
  7. SIMVASTATIN [Suspect]
     Active Substance: SIMVASTATIN
     Indication: Blood cholesterol increased
     Route: 065
     Dates: end: 2022
  8. Dorflex (dipyrone monohydrate, orphenadrine, caffeine anhydrous) [Concomitant]
     Indication: Pain
  9. PREGABALIN [Concomitant]
     Active Substance: PREGABALIN
     Indication: Sleep disorder
     Dosage: 150

REACTIONS (17)
  - Mouth breathing [Unknown]
  - Fibromyalgia [Unknown]
  - Influenza [Recovered/Resolved]
  - Dysphonia [Unknown]
  - Rhinalgia [Unknown]
  - Peripheral swelling [Unknown]
  - Deafness [Unknown]
  - Blood cholesterol abnormal [Unknown]
  - Varicose vein [Not Recovered/Not Resolved]
  - Dyspepsia [Unknown]
  - Unevaluable event [Unknown]
  - Throat irritation [Unknown]
  - Musculoskeletal stiffness [Recovering/Resolving]
  - Rhinorrhoea [Unknown]
  - Drug ineffective [Unknown]
  - Snoring [Unknown]
  - Pharyngitis [Unknown]

NARRATIVE: CASE EVENT DATE: 20230401
